FAERS Safety Report 11198142 (Version 2)
Quarter: 2015Q3

REPORT INFORMATION
  Report Type: Report from Study
  Country: US (occurrence: US)
  Receive Date: 20150618
  Receipt Date: 20150730
  Transmission Date: 20151125
  Serious: Yes (Death, Hospitalization)
  Sender: FDA-Public Use
  Company Number: US-AMGEN-USASL2015059008

PATIENT
  Age: 80 Year
  Sex: Male
  Weight: 52.61 kg

DRUGS (1)
  1. PROLIA [Suspect]
     Active Substance: DENOSUMAB
     Indication: OSTEOPOROSIS
     Dosage: 120 MG, UNK
     Route: 030
     Dates: start: 20150107

REACTIONS (11)
  - Dehydration [Recovered/Resolved]
  - Rib fracture [Unknown]
  - Hypernatraemia [Unknown]
  - Cardiac failure congestive [Fatal]
  - Ileus [Recovered/Resolved]
  - Fibrin D dimer increased [Unknown]
  - Pneumonia [Fatal]
  - Chronic obstructive pulmonary disease [Fatal]
  - Gout [Unknown]
  - Incorrect dose administered [Unknown]
  - Incorrect route of drug administration [Unknown]

NARRATIVE: CASE EVENT DATE: 20150107
